FAERS Safety Report 4596817-3 (Version None)
Quarter: 2005Q1

REPORT INFORMATION
  Report Type: 
  Country: None (occurrence: None)
  Receive Date: 20050228
  Receipt Date: 20050214
  Transmission Date: 20050727
  Serious: Yes (Hospitalization)
  Sender: FDA-Public Use
  Company Number: 2005032482

PATIENT
  Age: 48 Year
  Sex: Female

DRUGS (6)
  1. PRODILANTIN (FOSPHENYTOIN SODIUM) [Suspect]
     Indication: GRAND MAL CONVULSION
     Dosage: INTRAVENOUS
     Route: 042
     Dates: start: 20050117, end: 20050118
  2. VALPROATE SODIUM [Suspect]
     Indication: ILL-DEFINED DISORDER
     Dates: start: 20050117, end: 20050118
  3. CLONAZEPAM [Suspect]
     Indication: GRAND MAL CONVULSION
     Dosage: INTRAVENOUS
     Route: 042
     Dates: start: 20050117, end: 20050118
  4. CLAVULIN (AMOXICILLIN TRIHYDRATE, CLAVULANATE POTASSIUM) [Suspect]
     Indication: ILL-DEFINED DISORDER
  5. OXCARBAZEPINE (OXCARBAZEPINE) [Suspect]
     Indication: MIGRAINE
     Dosage: 1200 MG (600 MG, 2 IN 1 D), ORAL
     Route: 048
     Dates: start: 20030101, end: 20050119
  6. INTERFERON BETA (INTERFERON BETA) [Suspect]
     Indication: MULTIPLE SCLEROSIS
     Dosage: SUBCUTANEOUS
     Route: 058
     Dates: end: 20050116

REACTIONS (2)
  - HEPATITIS FULMINANT [None]
  - HEPATOCELLULAR DAMAGE [None]
